FAERS Safety Report 24355370 (Version 4)
Quarter: 2025Q2

REPORT INFORMATION
  Report Type: Spontaneous
  Country: GB (occurrence: GB)
  Receive Date: 20240924
  Receipt Date: 20250423
  Transmission Date: 20250716
  Serious: Yes (Other)
  Sender: AUROBINDO
  Company Number: GB-MLMSERVICE-20240814-PI162505-00306-1

PATIENT
  Age: 63 Year
  Sex: Male

DRUGS (8)
  1. VORICONAZOLE [Suspect]
     Active Substance: VORICONAZOLE
     Indication: Fungal infection
     Dosage: 400 MILLIGRAM, TWO TIMES A DAY FOR TWO DOSES
     Route: 048
  2. VORICONAZOLE [Suspect]
     Active Substance: VORICONAZOLE
     Indication: Aspergillus infection
     Dosage: 200 MILLIGRAM, TWO TIMES A DAY
     Route: 048
  3. PREDNISOLONE [Suspect]
     Active Substance: PREDNISOLONE
     Indication: Immunosuppressant drug therapy
     Route: 065
  4. PREDNISOLONE [Suspect]
     Active Substance: PREDNISOLONE
     Indication: Transplant rejection
     Dosage: 5 MILLIGRAM, ONCE A DAY (TAPERED DOWN)
     Route: 065
  5. TACROLIMUS [Suspect]
     Active Substance: TACROLIMUS
     Indication: Immunosuppressant drug therapy
     Route: 065
  6. MYCOPHENOLATE MOFETIL [Suspect]
     Active Substance: MYCOPHENOLATE MOFETIL
     Indication: Immunosuppressant drug therapy
     Route: 065
  7. METHYLPREDNISOLONE [Suspect]
     Active Substance: METHYLPREDNISOLONE
     Indication: Immunosuppressant drug therapy
     Dosage: 1 GRAM, ONCE A DAY
     Route: 065
  8. METHYLPREDNISOLONE [Suspect]
     Active Substance: METHYLPREDNISOLONE
     Indication: Transplant rejection

REACTIONS (8)
  - Renal impairment [Unknown]
  - Alopecia [Unknown]
  - Photosensitivity reaction [Unknown]
  - Transplant rejection [Recovering/Resolving]
  - Fusarium infection [Recovered/Resolved]
  - Fungal skin infection [Recovered/Resolved]
  - Urinary tract infection [Recovered/Resolved]
  - Aspergillus infection [Recovered/Resolved]
